FAERS Safety Report 14297941 (Version 1)
Quarter: 2017Q4

REPORT INFORMATION
  Report Type: Report from Study
  Country: CA (occurrence: CA)
  Receive Date: 20171218
  Receipt Date: 20171218
  Transmission Date: 20180321
  Serious: Yes (Other)
  Sender: FDA-Public Use
  Company Number: CA-REGENERON PHARMACEUTICALS, INC.-2017-29249

PATIENT

DRUGS (1)
  1. EYLEA [Suspect]
     Active Substance: AFLIBERCEPT
     Indication: DIABETIC RETINAL OEDEMA
     Dosage: UNK
     Dates: start: 20171106

REACTIONS (4)
  - Eye haemorrhage [Unknown]
  - Anaesthetic complication [Unknown]
  - Conjunctival hyperaemia [Unknown]
  - Crying [Unknown]

NARRATIVE: CASE EVENT DATE: 20171106
